FAERS Safety Report 9105218 (Version 1)
Quarter: 2013Q1

REPORT INFORMATION
  Report Type: Spontaneous
  Country: CA (occurrence: CA)
  Receive Date: 20130220
  Receipt Date: 20130220
  Transmission Date: 20140127
  Serious: Yes (Other)
  Sender: FDA-Public Use
  Company Number: PHHY2013CA015300

PATIENT
  Sex: Male

DRUGS (5)
  1. RITALIN [Suspect]
  2. MORPHINE SULFATE [Suspect]
  3. DILAUDID [Suspect]
  4. CANNABIS SATIVA SUBSP. INDICA TOP [Suspect]
  5. EFFEXOR XR [Suspect]

REACTIONS (4)
  - Aggression [Unknown]
  - Sexually inappropriate behaviour [Unknown]
  - Euphoric mood [Unknown]
  - Substance abuse [Unknown]
